FAERS Safety Report 21965366 (Version 1)
Quarter: 2023Q1

REPORT INFORMATION
  Report Type: Spontaneous
  Country: ES (occurrence: ES)
  Receive Date: 20230208
  Receipt Date: 20230208
  Transmission Date: 20230418
  Serious: Yes (Other)
  Sender: FDA-Public Use
  Company Number: ES-AEMPS-1324061

PATIENT
  Age: 58 Year
  Sex: Female

DRUGS (5)
  1. AMOXICILLIN\CLAVULANIC ACID [Suspect]
     Active Substance: AMOXICILLIN\CLAVULANIC ACID
     Indication: Pneumonia
     Dosage: 1 DOSAGE FORM, FOUR TIMES/DAY
     Route: 042
     Dates: start: 20221109, end: 20221114
  2. LEVETIRACETAM [Suspect]
     Active Substance: LEVETIRACETAM
     Indication: Seizure
     Dosage: UNK
     Route: 042
     Dates: start: 20221107, end: 20221117
  3. ACETAMINOPHEN [Suspect]
     Active Substance: ACETAMINOPHEN
     Indication: Pyrexia
     Dosage: 1 GRAM, FOUR TIMES/DAY
     Route: 042
     Dates: start: 20221105, end: 20221129
  4. METAMIZOL [Suspect]
     Active Substance: METAMIZOLE SODIUM
     Indication: Pyrexia
     Dosage: UNK
     Route: 042
     Dates: start: 20221105, end: 20221129
  5. NIMODIPINE [Suspect]
     Active Substance: NIMODIPINE
     Indication: Intracranial pressure increased
     Dosage: UNK
     Route: 042
     Dates: start: 20221105, end: 20221126

REACTIONS (1)
  - Hepatitis cholestatic [Recovering/Resolving]

NARRATIVE: CASE EVENT DATE: 20221110
